FAERS Safety Report 6884009-4 (Version None)
Quarter: 2010Q3

REPORT INFORMATION
  Report Type: 
  Country: None (occurrence: None)
  Receive Date: 20100729
  Receipt Date: 20100715
  Transmission Date: 20110219
  Serious: Yes (Hospitalization, Other)
  Sender: FDA-Public Use
  Company Number: PHHY2010JP41299

PATIENT
  Sex: Female
  Weight: 70 kg

DRUGS (12)
  1. ZOMETA [Suspect]
     Indication: METASTASES TO BONE
     Dosage: 4 MG PER ADMINISTRATION
     Route: 041
     Dates: start: 20060901, end: 20100319
  2. FUROSEMIDE [Concomitant]
     Dosage: UNK
     Route: 048
     Dates: start: 20060901, end: 20100319
  3. SPIRONOLACTONE [Concomitant]
     Dosage: UNK
     Route: 048
     Dates: start: 20000209, end: 20100319
  4. DECADRON [Concomitant]
     Dosage: UNK
     Route: 048
     Dates: start: 20060901, end: 20100319
  5. AMITRIPTYLINE HCL [Concomitant]
     Dosage: UNK
     Route: 048
     Dates: start: 20060901, end: 20100319
  6. KETOTIFEN FUMARATE [Concomitant]
     Dosage: UNK
     Route: 048
     Dates: start: 20060901, end: 20100319
  7. ACINON [Concomitant]
     Dosage: UNK
     Route: 048
     Dates: start: 20060901, end: 20100319
  8. LEVEMIR [Concomitant]
     Dosage: UNK
     Route: 058
     Dates: start: 20060901, end: 20100319
  9. AMARYL [Concomitant]
     Dosage: UNK
     Route: 048
     Dates: start: 20060901, end: 20100319
  10. OXYGEN THERAPY [Concomitant]
  11. PACLITAXEL [Concomitant]
     Dosage: UNK
  12. TS 1 [Concomitant]
     Dosage: 4 TABLETS IN TWO DIVIDED DOSE
     Dates: end: 20100416

REACTIONS (7)
  - BONE DISORDER [None]
  - MALIGNANT NEOPLASM PROGRESSION [None]
  - MOUTH HAEMORRHAGE [None]
  - OSTEONECROSIS OF JAW [None]
  - RASH [None]
  - TOOTH DISORDER [None]
  - TOOTH EXTRACTION [None]
